FAERS Safety Report 6933299-8 (Version None)
Quarter: 2010Q3

REPORT INFORMATION
  Report Type: 
  Country: None (occurrence: None)
  Receive Date: 20100820
  Receipt Date: 20100416
  Transmission Date: 20110219
  Serious: Yes (Other)
  Sender: FDA-Public Use
  Company Number: US-RANBAXY-2010US-33682

PATIENT

DRUGS (9)
  1. GANCICLOVIR [Suspect]
     Indication: ANTIVIRAL PROPHYLAXIS
     Dosage: 1000 MG, TID
     Route: 048
     Dates: start: 20070828, end: 20071203
  2. ACYCLOVIR SODIUM [Suspect]
     Indication: ANTIVIRAL PROPHYLAXIS
     Dosage: 400 MG, BID
     Route: 048
     Dates: start: 20070828, end: 20071203
  3. MARIBAVIR (PLACEBO) [Suspect]
     Indication: ANTIVIRAL PROPHYLAXIS
     Dosage: 100 MG, BID
     Route: 048
     Dates: start: 20070828, end: 20071203
  4. LASIX [Concomitant]
     Indication: ASCITES
     Dosage: UNK UNK,
     Route: 065
  5. LASIX [Concomitant]
     Indication: HYPERTENSION
  6. LORTAB [Concomitant]
     Indication: HEADACHE
     Route: 065
  7. NORVASC [Concomitant]
     Indication: HYPERTENSION
     Route: 065
  8. SEPTRA [Concomitant]
     Indication: ANTIBIOTIC PROPHYLAXIS
     Route: 065
  9. TACROLIMUS [Concomitant]
     Indication: PROPHYLAXIS AGAINST TRANSPLANT REJECTION
     Route: 065

REACTIONS (2)
  - CYTOMEGALOVIRUS COLITIS [None]
  - DRUG INEFFECTIVE [None]
